FAERS Safety Report 21074042 (Version 2)
Quarter: 2022Q3

REPORT INFORMATION
  Report Type: Spontaneous
  Country: AU (occurrence: AU)
  Receive Date: 20220713
  Receipt Date: 20220719
  Transmission Date: 20221026
  Serious: Yes (Hospitalization)
  Sender: FDA-Public Use
  Company Number: AU-BAYER-2022A093066

PATIENT
  Age: 66 Year
  Sex: Female

DRUGS (3)
  1. XARELTO [Suspect]
     Active Substance: RIVAROXABAN
     Indication: Deep vein thrombosis postoperative
     Dosage: 15 MG, BID
     Route: 048
     Dates: start: 20220628, end: 20220701
  2. LAMICTAL [Concomitant]
     Active Substance: LAMOTRIGINE
     Dosage: 25 MG
  3. VALPROIC ACID [Concomitant]
     Active Substance: VALPROIC ACID
     Dosage: 500 MG, BID

REACTIONS (3)
  - Anaphylactic reaction [Recovered/Resolved]
  - Swelling face [Recovered/Resolved]
  - Lip swelling [Recovered/Resolved]

NARRATIVE: CASE EVENT DATE: 20220701
